FAERS Safety Report 21191509 (Version 4)
Quarter: 2022Q4

REPORT INFORMATION
  Report Type: Report from Study
  Country: US (occurrence: US)
  Receive Date: 20220809
  Receipt Date: 20221219
  Transmission Date: 20230112
  Serious: Yes (Hospitalization)
  Sender: FDA-Public Use
  Company Number: US-GBT-015077

PATIENT
  Age: 28 Year
  Sex: Female

DRUGS (6)
  1. OXBRYTA [Suspect]
     Active Substance: VOXELOTOR
     Indication: Sickle cell disease
     Dosage: ON 08-JUN-2022, THE PATIENT RECEIVED THE LAST DOSE OF OXBRYTA PRIOR TO EVENT ONSET.
     Dates: start: 20200504, end: 2020
  2. OXBRYTA [Suspect]
     Active Substance: VOXELOTOR
     Indication: Sickle cell disease
     Dates: start: 20201014
  3. DIPHENHYDRAMINE [Concomitant]
     Active Substance: DIPHENHYDRAMINE
     Indication: Pruritus
     Dosage: DOSAGE: 25 MG/ML ONCE
     Route: 042
     Dates: start: 20190905
  4. DIPHENHYDRAMINE [Concomitant]
     Active Substance: DIPHENHYDRAMINE
     Indication: Pruritus
     Dosage: DOSAGE: 50 MG/ML
     Route: 042
     Dates: start: 20190820
  5. Folic acid (folvite) [Concomitant]
     Indication: Sickle cell disease
     Route: 048
     Dates: start: 20130813
  6. ERGOCALCIFEROL [Concomitant]
     Active Substance: ERGOCALCIFEROL
     Indication: Sickle cell disease
     Dosage: DOSAGE: 50000 U
     Route: 048
     Dates: start: 20190925

REACTIONS (1)
  - Sickle cell anaemia with crisis [Recovered/Resolved]

NARRATIVE: CASE EVENT DATE: 20220610
